FAERS Safety Report 6533062-6 (Version None)
Quarter: 2010Q1

REPORT INFORMATION
  Report Type: 
  Country: None (occurrence: None)
  Receive Date: 20100111
  Receipt Date: 20091230
  Transmission Date: 20100710
  Serious: Yes (Hospitalization)
  Sender: FDA-Public Use
  Company Number: AU-PFIZER INC-2009315594

PATIENT
  Age: 42 Year
  Sex: Male
  Weight: 84 kg

DRUGS (4)
  1. IDARUBICIN HCL [Suspect]
     Indication: ACUTE MYELOID LEUKAEMIA
     Dosage: 18.9 MG, DAILY FOR 3 DAYS
     Route: 042
     Dates: start: 20091113
  2. CYTARABINE [Suspect]
     Indication: ACUTE MYELOID LEUKAEMIA
     Dosage: 210 MG, DAILY FOR 5 DAYS
     Route: 042
     Dates: start: 20091113
  3. ETOPOSIDE [Suspect]
     Indication: ACUTE MYELOID LEUKAEMIA
     Dosage: 157.5 MG, DAILY FOR 5 DAYS
     Route: 042
     Dates: start: 20091113
  4. PEGFILGRASTIM [Suspect]
     Indication: ACUTE MYELOID LEUKAEMIA
     Dosage: 6 MG, DAILY X 1
     Route: 058
     Dates: start: 20091120

REACTIONS (1)
  - CLOSTRIDIAL INFECTION [None]
